FAERS Safety Report 17942905 (Version 1)
Quarter: 2020Q2

REPORT INFORMATION
  Report Type: Spontaneous
  Country: CA (occurrence: CA)
  Receive Date: 20200625
  Receipt Date: 20200625
  Transmission Date: 20200714
  Serious: Yes (Death)
  Sender: FDA-Public Use
  Company Number: CA-ROCHE-2626977

PATIENT
  Age: 72 Year
  Sex: Male

DRUGS (2)
  1. OSELTAMIVIR [Suspect]
     Active Substance: OSELTAMIVIR
     Indication: H1N1 INFLUENZA
     Route: 065
  2. ZANAMIVIR [Suspect]
     Active Substance: ZANAMIVIR
     Indication: H1N1 INFLUENZA
     Route: 042

REACTIONS (11)
  - Bronchiectasis [Fatal]
  - Lung infiltration [Fatal]
  - Pathogen resistance [Fatal]
  - Respiratory disorder [Fatal]
  - Viral mutation identified [Fatal]
  - Multiple-drug resistance [Fatal]
  - Lung abscess [Fatal]
  - Pulmonary fibrosis [Fatal]
  - Organising pneumonia [Fatal]
  - Pneumonia [Fatal]
  - Dyspnoea [Fatal]
